FAERS Safety Report 18559175 (Version 1)
Quarter: 2020Q4

REPORT INFORMATION
  Report Type: Spontaneous
  Country: US (occurrence: US)
  Receive Date: 20201127
  Receipt Date: 20201127
  Transmission Date: 20210114
  Serious: Yes (Hospitalization, Disabling)
  Sender: FDA-Public Use
  Company Number: None

PATIENT
  Age: 29 Year
  Sex: Male
  Weight: 81 kg

DRUGS (4)
  1. N-ACETYLCYSTEINE [Concomitant]
     Active Substance: ACETYLCYSTEINE
  2. CIPROFLOXACIN. [Suspect]
     Active Substance: CIPROFLOXACIN
     Indication: URINARY TRACT INFECTION
     Dosage: ?          QUANTITY:20 TABLET(S);?
     Route: 048
     Dates: start: 20201116, end: 20201118
  3. MAGNESIUM [Concomitant]
     Active Substance: MAGNESIUM
  4. ALPHA LIPOIC ACID [Concomitant]
     Active Substance: .ALPHA.-LIPOIC ACID

REACTIONS (8)
  - Tinnitus [None]
  - Toxicity to various agents [None]
  - Panic attack [None]
  - Arthralgia [None]
  - Visual impairment [None]
  - Fatigue [None]
  - Tendon disorder [None]
  - Tendon rupture [None]

NARRATIVE: CASE EVENT DATE: 20201118
